FAERS Safety Report 20560072 (Version 1)
Quarter: 2022Q1

REPORT INFORMATION
  Report Type: Spontaneous
  Country: US (occurrence: US)
  Receive Date: 20220307
  Receipt Date: 20220307
  Transmission Date: 20220424
  Serious: Yes (Other)
  Sender: FDA-Public Use
  Company Number: US-MLMSERVICE-20220221-3387309-1

PATIENT
  Age: 5 Month
  Sex: Female

DRUGS (5)
  1. HYDROCORTISONE [Suspect]
     Active Substance: HYDROCORTISONE
     Indication: Adrenogenital syndrome
     Dosage: 25 MG, (PRIOR TO HER PROCEDURE)
     Route: 042
  2. HYDROCORTISONE [Suspect]
     Active Substance: HYDROCORTISONE
     Dosage: 13 MG/M2, DAILY
  3. SODIUM CHLORIDE [Suspect]
     Active Substance: SODIUM CHLORIDE
     Indication: Adrenogenital syndrome
     Dosage: 130 MEQ, DAILY (CALCULATED AS 21.99 MEQ/KG/DAY)
  4. SODIUM CHLORIDE [Suspect]
     Active Substance: SODIUM CHLORIDE
     Indication: Hypertension neonatal
  5. FLUDROCORTISONE [Suspect]
     Active Substance: FLUDROCORTISONE
     Indication: Adrenogenital syndrome
     Dosage: 0.25 MG, DAILY

REACTIONS (4)
  - Hypernatraemia [Unknown]
  - Secondary hypertension [Unknown]
  - Left ventricular hypertrophy [Unknown]
  - Hyperglycaemia [Unknown]
